FAERS Safety Report 5849214-4 (Version None)
Quarter: 2008Q3

REPORT INFORMATION
  Report Type: 
  Country: None (occurrence: None)
  Receive Date: 20080818
  Receipt Date: 20080818
  Transmission Date: 20090109
  Serious: Yes (Other)
  Sender: FDA-Public Use
  Company Number: None

PATIENT
  Age: 67 Year
  Sex: Female
  Weight: 62.5964 kg

DRUGS (1)
  1. FOSAMAX [Suspect]
     Indication: OSTEOPENIA
     Dosage: 1 TABLET -70-MG ONCE A WEEK PO
     Route: 048
     Dates: start: 20070501, end: 20080726

REACTIONS (7)
  - ARTHRALGIA [None]
  - BONE PAIN [None]
  - FATIGUE [None]
  - INITIAL INSOMNIA [None]
  - JAW DISORDER [None]
  - MUSCULAR WEAKNESS [None]
  - NERVOUSNESS [None]
